FAERS Safety Report 8432017-4 (Version None)
Quarter: 2012Q2

REPORT INFORMATION
  Report Type: 
  Country: None (occurrence: None)
  Receive Date: 20120613
  Receipt Date: 20110908
  Transmission Date: 20120825
  Serious: No
  Sender: FDA-Public Use
  Company Number: US-ASTRAZENECA-2011SE54389

PATIENT
  Sex: Female

DRUGS (2)
  1. EYE DROPS [Concomitant]
  2. RHINOCORT [Suspect]
     Route: 045

REACTIONS (1)
  - ACCIDENTAL EXPOSURE [None]
